FAERS Safety Report 5836530-5 (Version None)
Quarter: 2008Q3

REPORT INFORMATION
  Report Type: 
  Country: None (occurrence: None)
  Receive Date: 20080807
  Receipt Date: 20080728
  Transmission Date: 20090109
  Serious: Yes (Hospitalization, Other)
  Sender: FDA-Public Use
  Company Number: AU-ALLERGAN-0705915US

PATIENT
  Sex: Male

DRUGS (4)
  1. BOTOX [Suspect]
     Indication: CEREBRAL PALSY
     Dosage: 400 UNITS, UNK
     Route: 030
     Dates: start: 20040701, end: 20040701
  2. BOTOX [Suspect]
     Dosage: 400 UNITS, UNK
     Route: 030
     Dates: start: 20050101, end: 20050101
  3. BOTOX [Suspect]
     Dosage: 400 UNITS, UNK
     Route: 030
     Dates: start: 20050801, end: 20050801
  4. BOTOX [Suspect]
     Dosage: 400 UNITS, UNK
     Route: 030
     Dates: start: 20051201, end: 20051201

REACTIONS (8)
  - DYSPHAGIA [None]
  - DYSPNOEA [None]
  - HAEMATEMESIS [None]
  - LARYNGEAL OBSTRUCTION [None]
  - OBSTRUCTIVE AIRWAYS DISORDER [None]
  - PNEUMONIA [None]
  - STRIDOR [None]
  - VOMITING [None]
